FAERS Safety Report 9866787 (Version 2)
Quarter: 2014Q1

REPORT INFORMATION
  Report Type: Spontaneous
  Country: DE (occurrence: DE)
  Receive Date: 20140204
  Receipt Date: 20140206
  Transmission Date: 20141002
  Serious: Yes (Hospitalization)
  Sender: FDA-Public Use
  Company Number: DE-ROCHE-1342532

PATIENT
  Sex: Male

DRUGS (2)
  1. LUCENTIS [Suspect]
     Indication: PRODUCT USED FOR UNKNOWN INDICATION
     Route: 050
  2. LUCENTIS [Suspect]
     Route: 050
     Dates: start: 20140115, end: 20140115

REACTIONS (3)
  - Keratitis [Unknown]
  - Corneal disorder [Recovering/Resolving]
  - Arterial disorder [Recovering/Resolving]
